FAERS Safety Report 11079739 (Version 2)
Quarter: 2015Q2

REPORT INFORMATION
  Report Type: Spontaneous
  Country: NL (occurrence: NL)
  Receive Date: 20150430
  Receipt Date: 20150508
  Transmission Date: 20150821
  Serious: Yes (Death, Other)
  Sender: FDA-Public Use
  Company Number: NL-BAYER-2015-178609

PATIENT
  Sex: Male

DRUGS (1)
  1. STIVARGA [Suspect]
     Active Substance: REGORAFENIB
     Indication: GASTROINTESTINAL STROMAL TUMOUR
     Route: 048

REACTIONS (7)
  - Diarrhoea [None]
  - Death [Fatal]
  - Nausea [None]
  - Hyperkalaemia [None]
  - Posterior reversible encephalopathy syndrome [None]
  - Hypercalcaemia [None]
  - Back pain [None]
